FAERS Safety Report 6367936-6 (Version None)
Quarter: 2009Q3

REPORT INFORMATION
  Report Type: 
  Country: None (occurrence: None)
  Receive Date: 20090922
  Receipt Date: 20090105
  Transmission Date: 20100115
  Serious: No
  Sender: FDA-Public Use
  Company Number: A0762340A

PATIENT
  Age: 75 Year
  Sex: Female

DRUGS (3)
  1. SEREVENT [Suspect]
     Indication: BRONCHOSPASM
     Dosage: 1PUFF TWICE PER DAY
     Route: 055
     Dates: start: 20080128
  2. ZITHROMAX [Concomitant]
  3. ALBUTEROL [Concomitant]

REACTIONS (3)
  - BLOOD PRESSURE INCREASED [None]
  - HEADACHE [None]
  - PALPITATIONS [None]
